FAERS Safety Report 5895705-X (Version None)
Quarter: 2008Q3

REPORT INFORMATION
  Report Type: 
  Country: None (occurrence: None)
  Receive Date: 20080820
  Receipt Date: 20080319
  Transmission Date: 20090109
  Serious: Yes (Other)
  Sender: FDA-Public Use
  Company Number: DSA_62029_2008

PATIENT
  Age: 12 Year
  Sex: Female
  Weight: 26.3086 kg

DRUGS (3)
  1. DIASTAT ACUDIAL [Suspect]
     Indication: LENNOX-GASTAUT SYNDROME
     Dosage: (15 MG PRN RECTAL)
     Route: 054
     Dates: start: 19990101
  2. LAMICTAL [Concomitant]
  3. KLONOPIN [Concomitant]

REACTIONS (3)
  - CONVULSION [None]
  - DRUG INEFFECTIVE [None]
  - PHARMACEUTICAL PRODUCT COMPLAINT [None]
